FAERS Safety Report 5872836-1 (Version None)
Quarter: 2008Q3

REPORT INFORMATION
  Report Type: 
  Country: None (occurrence: None)
  Receive Date: 20080903
  Receipt Date: 20080806
  Transmission Date: 20090109
  Serious: No
  Sender: FDA-Public Use
  Company Number: ADE# 08-123

PATIENT
  Sex: Female
  Weight: 68.0396 kg

DRUGS (2)
  1. PHENTERMINE HCL [Suspect]
     Indication: ASTHENIA
     Dosage: 1 TABLET DAILY
     Dates: start: 20080801
  2. PHENTERMINE HCL [Suspect]
     Indication: WEIGHT DECREASED
     Dosage: 1 TABLET DAILY
     Dates: start: 20080801

REACTIONS (2)
  - DRUG EFFECT DECREASED [None]
  - PHARMACEUTICAL PRODUCT COMPLAINT [None]
